FAERS Safety Report 9610955 (Version 1)
Quarter: 2013Q4

REPORT INFORMATION
  Report Type: Spontaneous
  Country: US (occurrence: US)
  Receive Date: 20131009
  Receipt Date: 20131009
  Transmission Date: 20140711
  Serious: Yes (Other)
  Sender: FDA-Public Use
  Company Number: US-ENDO PHARMACEUTICALS INC.-OPCR20130368

PATIENT
  Age: 76 Year
  Sex: Female

DRUGS (7)
  1. OPANA ER 20MG [Suspect]
     Indication: BACK PAIN
     Route: 048
     Dates: start: 201301
  2. PRAVASTATIN [Concomitant]
     Indication: BLOOD CHOLESTEROL INCREASED
     Route: 048
  3. CARVEDILOL [Concomitant]
     Indication: CARDIAC DISORDER
     Route: 048
  4. TAZTIA XT [Concomitant]
     Indication: HYPERTENSION
     Route: 048
  5. LISINOPRIL TABLETS 10MG [Concomitant]
     Indication: PRODUCT USED FOR UNKNOWN INDICATION
     Route: 048
  6. ASPIRIN [Concomitant]
     Indication: PRODUCT USED FOR UNKNOWN INDICATION
     Route: 048
  7. VENLAFAXINE [Concomitant]
     Indication: DEPRESSION
     Route: 048

REACTIONS (2)
  - Myocardial infarction [Recovered/Resolved]
  - Drug effect decreased [Not Recovered/Not Resolved]
